FAERS Safety Report 4307739-7 (Version None)
Quarter: 2004Q1

REPORT INFORMATION
  Report Type: 
  Country: None (occurrence: None)
  Receive Date: 20040225
  Receipt Date: 20030227
  Transmission Date: 20041129
  Serious: Yes (Disabling)
  Sender: FDA-Public Use
  Company Number: WAES 0302USA03125

PATIENT
  Age: 56 Year
  Sex: Male

DRUGS (4)
  1. ZOCOR [Suspect]
     Indication: HYPERLIPIDAEMIA
     Dosage: 40 MG/ ; 20 MG  :DAILY/PO
     Route: 048
     Dates: start: 20011001, end: 20020401
  2. FLOVENT [Concomitant]
  3. PAXIL [Concomitant]
  4. SEREVENT [Concomitant]

REACTIONS (2)
  - ASTHENIA [None]
  - MYALGIA [None]
